FAERS Safety Report 8320226-4 (Version None)
Quarter: 2012Q2

REPORT INFORMATION
  Report Type: 
  Country: None (occurrence: None)
  Receive Date: 20120430
  Receipt Date: 20120419
  Transmission Date: 20120825
  Serious: No
  Sender: FDA-Public Use
  Company Number: US-BIOGENIDEC-2012BI002591

PATIENT
  Sex: Female

DRUGS (4)
  1. DIOVAN [Concomitant]
     Indication: HYPERTENSION
     Dates: start: 19970101
  2. AVONEX [Suspect]
     Route: 030
     Dates: start: 20110312
  3. AVONEX [Suspect]
     Indication: MULTIPLE SCLEROSIS
     Route: 030
  4. METFORMIN HCL [Concomitant]
     Indication: TYPE 2 DIABETES MELLITUS

REACTIONS (6)
  - BLOOD PRESSURE INCREASED [None]
  - MUSCLE SPASMS [None]
  - SENSATION OF HEAVINESS [None]
  - PAIN [None]
  - INSOMNIA [None]
  - BLOOD GLUCOSE INCREASED [None]
